FAERS Safety Report 4756237-5 (Version None)
Quarter: 2005Q3

REPORT INFORMATION
  Report Type: 
  Country: None (occurrence: None)
  Receive Date: 20050830
  Receipt Date: 20050511
  Transmission Date: 20060218
  Serious: No
  Sender: FDA-Public Use
  Company Number: US-GLAXOSMITHKLINE-A0558144A

PATIENT
  Age: 13 Year
  Sex: Male
  Weight: 78.9 kg

DRUGS (2)
  1. WELLBUTRIN XL [Suspect]
     Indication: DEPRESSION
     Dosage: 300MG PER DAY
     Route: 048
     Dates: start: 20050110, end: 20050112
  2. WELLBUTRIN SR [Concomitant]
     Route: 048

REACTIONS (2)
  - RASH [None]
  - URTICARIA [None]
